FAERS Safety Report 23508290 (Version 2)
Quarter: 2024Q1

REPORT INFORMATION
  Report Type: Spontaneous
  Country: US (occurrence: None)
  Receive Date: 20240209
  Receipt Date: 20240325
  Transmission Date: 20240409
  Serious: Yes (Hospitalization, Other)
  Sender: FDA-Public Use
  Company Number: 2024A027108

PATIENT
  Age: 26744 Day
  Sex: Female

DRUGS (4)
  1. SYMBICORT [Suspect]
     Active Substance: BUDESONIDE\FORMOTEROL FUMARATE DIHYDRATE
     Indication: Chronic obstructive pulmonary disease
     Dosage: UNKNOWN UNKNOWN
     Route: 055
     Dates: start: 2015
  2. FASENRA [Suspect]
     Active Substance: BENRALIZUMAB
     Dosage: 30.0MG UNKNOWN
     Route: 058
     Dates: start: 20231201
  3. QVAR [Concomitant]
     Active Substance: BECLOMETHASONE DIPROPIONATE
  4. VITAMIN B12 [Concomitant]
     Active Substance: CYANOCOBALAMIN

REACTIONS (20)
  - Hypotension [Unknown]
  - Multiple fractures [Unknown]
  - Gait inability [Unknown]
  - Overdose [Unknown]
  - Confusional state [Unknown]
  - Asthma [Unknown]
  - Malaise [Unknown]
  - Headache [Unknown]
  - Taste disorder [Unknown]
  - Nausea [Unknown]
  - Fatigue [Unknown]
  - Dizziness [Unknown]
  - Dysphonia [Unknown]
  - Wheezing [Unknown]
  - Hypersensitivity [Unknown]
  - Tachycardia [Unknown]
  - Cardiac disorder [Unknown]
  - Sleep disorder [Unknown]
  - Chronic obstructive pulmonary disease [Unknown]
  - Inability to afford medication [Unknown]

NARRATIVE: CASE EVENT DATE: 20230101
